FAERS Safety Report 24316772 (Version 4)
Quarter: 2025Q2

REPORT INFORMATION
  Report Type: Spontaneous
  Country: US (occurrence: US)
  Receive Date: 20240913
  Receipt Date: 20250620
  Transmission Date: 20250717
  Serious: Yes (Other)
  Sender: CSL BEHRING
  Company Number: US-BEH-2024178385

PATIENT
  Sex: Male

DRUGS (13)
  1. IDELVION [Suspect]
     Active Substance: COAGULATION FACTOR IX RECOMBINANT HUMAN
     Indication: Factor IX deficiency
     Route: 042
  2. IDELVION [Suspect]
     Active Substance: COAGULATION FACTOR IX RECOMBINANT HUMAN
     Indication: Factor IX deficiency
     Route: 042
  3. IDELVION [Suspect]
     Active Substance: COAGULATION FACTOR IX RECOMBINANT HUMAN
     Indication: Factor IX deficiency
     Dosage: INFUSE 10,000 UNITS +/-10%(DOSE= 2206+(2*3853)=9912), EVERY 14 DAYS
     Route: 042
  4. IDELVION [Suspect]
     Active Substance: COAGULATION FACTOR IX RECOMBINANT HUMAN
     Indication: Factor IX deficiency
     Dosage: INFUSE 10,000 UNITS +/-10%(DOSE= 2206+(2*3853)=9912), EVERY 14 DAYS
     Route: 042
  5. IDELVION [Suspect]
     Active Substance: COAGULATION FACTOR IX RECOMBINANT HUMAN
     Dosage: INFUSE 10,000 UNITS +/-10%(DOSE= 2206+(2*3853)=9912), EVERY 14 DAYS
     Route: 042
  6. IDELVION [Suspect]
     Active Substance: COAGULATION FACTOR IX RECOMBINANT HUMAN
     Dosage: INFUSE 10,000 UNITS +/-10%(DOSE= 2206+(2*3853)=9912), EVERY 14 DAYS
     Route: 042
  7. METRONIDAZOLE [Concomitant]
     Active Substance: METRONIDAZOLE
  8. PANTOPRAZOLE [Concomitant]
     Active Substance: PANTOPRAZOLE
  9. CEPHALEXIN [Concomitant]
     Active Substance: CEPHALEXIN
  10. Oxycodone hameln [Concomitant]
  11. HYDROCHLOROTHIAZIDE [Concomitant]
     Active Substance: HYDROCHLOROTHIAZIDE
  12. VITAMINS [Concomitant]
     Active Substance: VITAMINS
  13. Immune enhance [Concomitant]

REACTIONS (8)
  - Haemarthrosis [Recovered/Resolved]
  - Haemarthrosis [Unknown]
  - Muscle haemorrhage [Recovered/Resolved]
  - Back pain [Unknown]
  - Arthralgia [Recovering/Resolving]
  - Inappropriate schedule of product administration [Unknown]
  - Gait disturbance [Unknown]
  - Weight decreased [Unknown]
